FAERS Safety Report 8366191-5 (Version None)
Quarter: 2012Q2

REPORT INFORMATION
  Report Type: 
  Country: None (occurrence: None)
  Receive Date: 20120517
  Receipt Date: 20120510
  Transmission Date: 20120825
  Serious: Yes (Hospitalization)
  Sender: FDA-Public Use
  Company Number: US-BAYER-2012-020980

PATIENT
  Age: 32 Year
  Sex: Female
  Weight: 77 kg

DRUGS (5)
  1. YAZ [Suspect]
     Indication: CONTRACEPTION
     Dosage: UNK
     Dates: start: 20090101, end: 20100801
  2. MULTI-VITAMIN [Concomitant]
     Dosage: UNK UNK, QD
     Dates: start: 20100520
  3. DOPAMINE HCL [Concomitant]
     Indication: BLOOD PRESSURE DECREASED
  4. MAXALT [Concomitant]
     Indication: MIGRAINE
     Dosage: 10 MG, PRN
     Dates: start: 20100520
  5. SCOPOLAMINE [Concomitant]
     Indication: MOTION SICKNESS
     Dosage: UNK
     Dates: start: 20100520

REACTIONS (4)
  - PULMONARY EMBOLISM [None]
  - CARDIAC FAILURE [None]
  - HIGH RISK PREGNANCY [None]
  - DEEP VEIN THROMBOSIS [None]
